FAERS Safety Report 23093758 (Version 4)
Quarter: 2025Q1

REPORT INFORMATION
  Report Type: Spontaneous
  Country: CA (occurrence: CA)
  Receive Date: 20231023
  Receipt Date: 20250205
  Transmission Date: 20250409
  Serious: Yes (Life-Threatening)
  Sender: SANDOZ
  Company Number: CA-002147023-NVSC2023CA109909

PATIENT
  Sex: Male

DRUGS (4)
  1. EZETIMIBE [Suspect]
     Active Substance: EZETIMIBE
     Indication: Arteriosclerosis
     Dosage: 10 MG, QD
     Route: 065
  2. LEQVIO [Suspect]
     Active Substance: INCLISIRAN SODIUM
     Indication: Arteriosclerosis
     Route: 058
     Dates: end: 20231018
  3. PRAVASTATIN SODIUM [Suspect]
     Active Substance: PRAVASTATIN SODIUM
     Indication: Arteriosclerosis
     Dosage: 10 MG, QD
     Route: 058
     Dates: start: 202304
  4. PRAVASTATIN SODIUM [Suspect]
     Active Substance: PRAVASTATIN SODIUM
     Route: 058
     Dates: start: 202304

REACTIONS (6)
  - Feeling abnormal [Unknown]
  - Malaise [Unknown]
  - Dyspnoea [Unknown]
  - Low density lipoprotein increased [Unknown]
  - Drug intolerance [Unknown]
  - Drug ineffective [Unknown]
